FAERS Safety Report 21785401 (Version 1)
Quarter: 2022Q4

REPORT INFORMATION
  Report Type: Spontaneous
  Country: GB (occurrence: GB)
  Receive Date: 20221227
  Receipt Date: 20221227
  Transmission Date: 20230113
  Serious: Yes (Other)
  Sender: FDA-Public Use
  Company Number: None

PATIENT
  Sex: Female
  Weight: 68 kg

DRUGS (1)
  1. BIMATOPROST\TIMOLOL MALEATE [Suspect]
     Active Substance: BIMATOPROST\TIMOLOL MALEATE
     Indication: Ocular hypertension
     Dates: start: 20220910, end: 20221120

REACTIONS (1)
  - Blood pressure increased [Recovered/Resolved]
